FAERS Safety Report 15739863 (Version 3)
Quarter: 2024Q1

REPORT INFORMATION
  Report Type: Spontaneous
  Country: US (occurrence: US)
  Receive Date: 20181219
  Receipt Date: 20240226
  Transmission Date: 20240409
  Serious: No
  Sender: FDA-Public Use
  Company Number: US-SA-2018SA341229

PATIENT
  Age: 33 Year
  Sex: Male

DRUGS (5)
  1. FABRAZYME [Suspect]
     Active Substance: AGALSIDASE BETA
     Indication: Fabry^s disease
     Dosage: 70 MG, QOW
     Route: 041
     Dates: start: 20160825
  2. FABRAZYME [Suspect]
     Active Substance: AGALSIDASE BETA
     Dosage: 30 MG, QOW
     Route: 041
     Dates: start: 20160825
  3. FABRAZYME [Suspect]
     Active Substance: AGALSIDASE BETA
     Dosage: 105 MG, QOW
     Route: 042
     Dates: start: 201609, end: 20181030
  4. FABRAZYME [Suspect]
     Active Substance: AGALSIDASE BETA
     Dosage: 5 MG, QOW
     Route: 042
     Dates: start: 201609, end: 20181030
  5. FABRAZYME [Suspect]
     Active Substance: AGALSIDASE BETA
     Dosage: 105 MG, QOW
     Route: 042
     Dates: start: 202110

REACTIONS (7)
  - Weight increased [Unknown]
  - Weight increased [Unknown]
  - Infusion related reaction [Recovered/Resolved]
  - Vomiting [Recovered/Resolved]
  - Cough [Recovered/Resolved]
  - Pyrexia [Recovered/Resolved]
  - Chills [Recovered/Resolved]

NARRATIVE: CASE EVENT DATE: 20181030
